FAERS Safety Report 13032617 (Version 1)
Quarter: 2016Q4

REPORT INFORMATION
  Report Type: Spontaneous
  Country: US (occurrence: US)
  Receive Date: 20161215
  Receipt Date: 20161215
  Transmission Date: 20170207
  Serious: No
  Sender: FDA-Public Use
  Company Number: US-PFIZER INC-2016581048

PATIENT
  Sex: Female

DRUGS (1)
  1. XELJANZ [Suspect]
     Active Substance: TOFACITINIB CITRATE
     Dosage: UNK

REACTIONS (6)
  - Myalgia [Unknown]
  - Pain in extremity [Recovering/Resolving]
  - Vitamin D decreased [Unknown]
  - Fatigue [Unknown]
  - Arthralgia [Recovering/Resolving]
  - Blood creatine phosphokinase increased [Unknown]
